FAERS Safety Report 10177147 (Version 2)
Quarter: 2014Q2

REPORT INFORMATION
  Report Type: Report from Study
  Country: DE (occurrence: DE)
  Receive Date: 20140516
  Receipt Date: 20140516
  Transmission Date: 20141212
  Serious: Yes (Other)
  Sender: FDA-Public Use
  Company Number: DE-ABBVIE-14P-062-1201899-00

PATIENT
  Sex: Male

DRUGS (8)
  1. HUMIRA [Suspect]
     Indication: RHEUMATOID ARTHRITIS
     Route: 058
     Dates: start: 20130712, end: 20131201
  2. HUMIRA [Suspect]
     Dates: start: 20140205
  3. PREDNISOLON [Concomitant]
     Indication: PRODUCT USED FOR UNKNOWN INDICATION
  4. MTX [Concomitant]
     Indication: PRODUCT USED FOR UNKNOWN INDICATION
  5. FOLSAN [Concomitant]
     Indication: PRODUCT USED FOR UNKNOWN INDICATION
  6. DEKRISTOL [Concomitant]
     Indication: PRODUCT USED FOR UNKNOWN INDICATION
  7. PANTOPRAZOLE [Concomitant]
     Indication: PRODUCT USED FOR UNKNOWN INDICATION
  8. IBUPROFEN [Concomitant]
     Indication: PRODUCT USED FOR UNKNOWN INDICATION

REACTIONS (1)
  - Osteoarthritis [Unknown]
